FAERS Safety Report 9416782 (Version 1)
Quarter: 2013Q3

REPORT INFORMATION
  Report Type: Spontaneous
  Country: US (occurrence: US)
  Receive Date: 20130724
  Receipt Date: 20130724
  Transmission Date: 20140515
  Serious: No
  Sender: FDA-Public Use
  Company Number: US-GALDERMA-US12415978

PATIENT
  Age: 63 Year
  Sex: Male

DRUGS (2)
  1. ORACEA (DOXYCYCLINE, USP) CAPSULES 40 MG [Suspect]
     Indication: ACNE
     Route: 048
     Dates: start: 201206
  2. MULTIVITAMINS [Concomitant]

REACTIONS (7)
  - Dizziness [Recovered/Resolved]
  - Vision blurred [Recovered/Resolved]
  - Abdominal distension [Recovered/Resolved]
  - Abdominal discomfort [Recovered/Resolved]
  - Abdominal pain upper [Not Recovered/Not Resolved]
  - Off label use [Recovered/Resolved]
  - Drug ineffective for unapproved indication [Not Recovered/Not Resolved]
